FAERS Safety Report 15832420 (Version 2)
Quarter: 2019Q1

REPORT INFORMATION
  Report Type: Spontaneous
  Country: US (occurrence: US)
  Receive Date: 20190116
  Receipt Date: 20190122
  Transmission Date: 20190417
  Serious: Yes (Other)
  Sender: FDA-Public Use
  Company Number: US-BAYER-2019-012091

PATIENT
  Age: 56 Year
  Sex: Female

DRUGS (4)
  1. ADEMPAS [Suspect]
     Active Substance: RIOCIGUAT
     Dosage: 1.0 UNK
     Dates: start: 20190112
  2. ADEMPAS [Suspect]
     Active Substance: RIOCIGUAT
     Dosage: 1.5 UNK
     Dates: start: 20180712
  3. IBUPROFEN. [Concomitant]
     Active Substance: IBUPROFEN
  4. ADEMPAS [Suspect]
     Active Substance: RIOCIGUAT
     Dosage: 0.5 MG, TID
     Dates: start: 20181207

REACTIONS (7)
  - Nausea [Recovered/Resolved]
  - Feeling abnormal [None]
  - Headache [None]
  - Heart rate increased [None]
  - Blood pressure diastolic decreased [None]
  - Headache [Recovered/Resolved]
  - Pain [None]

NARRATIVE: CASE EVENT DATE: 20190102
